FAERS Safety Report 9357816 (Version 1)
Quarter: 2013Q2

REPORT INFORMATION
  Report Type: Spontaneous
  Country: US (occurrence: US)
  Receive Date: 20130620
  Receipt Date: 20130620
  Transmission Date: 20140414
  Serious: No
  Sender: FDA-Public Use
  Company Number: US-BAYER-2013-076133

PATIENT
  Sex: Female

DRUGS (1)
  1. GIANVI [Suspect]
     Route: 048

REACTIONS (5)
  - Asthenia [None]
  - Fatigue [None]
  - Anxiety [None]
  - Irritability [None]
  - Pain [None]
